FAERS Safety Report 9156071 (Version 2)
Quarter: 2013Q2

REPORT INFORMATION
  Report Type: Spontaneous
  Country: JP (occurrence: JP)
  Receive Date: 20130311
  Receipt Date: 20130421
  Transmission Date: 20140414
  Serious: Yes (Other)
  Sender: FDA-Public Use
  Company Number: JP-UCBSA-080103

PATIENT
  Age: 9 Year
  Sex: Female

DRUGS (1)
  1. XYZAL [Suspect]
     Indication: PRURITUS
     Route: 048
     Dates: start: 201202

REACTIONS (4)
  - Loss of consciousness [Recovered/Resolved]
  - Eye movement disorder [Unknown]
  - Nystagmus [Unknown]
  - Epilepsy [Unknown]
